FAERS Safety Report 7334811-X (Version None)
Quarter: 2011Q1

REPORT INFORMATION
  Report Type: 
  Country: None (occurrence: None)
  Receive Date: 20110307
  Receipt Date: 20110225
  Transmission Date: 20110831
  Serious: Yes (Other)
  Sender: FDA-Public Use
  Company Number: FR-JNJFOC-20110300067

PATIENT
  Sex: Female

DRUGS (2)
  1. ANTIDEPRESSANT [Concomitant]
     Indication: DEPRESSION
     Route: 065
  2. TOPIRAMATE [Suspect]
     Indication: PAIN
     Route: 048
     Dates: start: 20080101

REACTIONS (2)
  - HEARING IMPAIRED [None]
  - OFF LABEL USE [None]
